FAERS Safety Report 23175004 (Version 1)
Quarter: 2023Q4

REPORT INFORMATION
  Report Type: Report from Study
  Country: CN (occurrence: CN)
  Receive Date: 20231112
  Receipt Date: 20231112
  Transmission Date: 20240110
  Serious: Yes (Other)
  Sender: FDA-Public Use
  Company Number: CN-002147023-NVSC2023CN240726

PATIENT
  Sex: Male
  Weight: 83 kg

DRUGS (2)
  1. COSENTYX [Suspect]
     Active Substance: SECUKINUMAB
     Indication: Psoriasis
     Dosage: 300 MG, QW (2 INJECTIONS, APRIL OR MAY 2023, UNDER THE SKIN, USUALLY ADMINISTERED BY INJECTION)
     Route: 058
     Dates: start: 2023
  2. COSENTYX [Suspect]
     Active Substance: SECUKINUMAB
     Dosage: 150 MG, Q2W (1 INJECTION, EVERY HALF MONTH) (UNDER THE SKIN, USUALLY ADMINISTERED BY INJECTION)
     Route: 058
     Dates: start: 2023

REACTIONS (3)
  - Drug dependence [Unknown]
  - Rebound psoriasis [Not Recovered/Not Resolved]
  - Inappropriate schedule of product administration [Unknown]

NARRATIVE: CASE EVENT DATE: 20230101
